FAERS Safety Report 7065113-7 (Version None)
Quarter: 2010Q4

REPORT INFORMATION
  Report Type: 
  Country: None (occurrence: None)
  Receive Date: 20101022
  Receipt Date: 20101022
  Transmission Date: 20110411
  Serious: Yes (Hospitalization)
  Sender: FDA-Public Use
  Company Number: None

PATIENT
  Age: 47 Year
  Sex: Female
  Weight: 68.1 kg

DRUGS (8)
  1. CARBOPLATIN [Suspect]
     Indication: METASTATIC MALIGNANT MELANOMA
     Dosage: 670MG ONCE EVERY 28 DAYS IV
     Route: 042
     Dates: start: 20100928, end: 20100928
  2. PACLITAXEL [Suspect]
     Indication: METASTATIC MALIGNANT MELANOMA
     Dosage: 300MG ONCE EVERY 28 DAYS IV
     Route: 042
     Dates: start: 20100928, end: 20100928
  3. TEMOZOLOMIDE [Concomitant]
  4. ZOFRAN [Concomitant]
  5. COMPAZINE [Concomitant]
  6. DEXAMETHASONE [Concomitant]
  7. ZOFRAN [Concomitant]
  8. LORTAB [Concomitant]

REACTIONS (3)
  - METASTASES TO CENTRAL NERVOUS SYSTEM [None]
  - NO THERAPEUTIC RESPONSE [None]
  - VOMITING [None]
